FAERS Safety Report 8270124-X (Version None)
Quarter: 2012Q2

REPORT INFORMATION
  Report Type: 
  Country: None (occurrence: None)
  Receive Date: 20120410
  Receipt Date: 20120403
  Transmission Date: 20120825
  Serious: Yes (Other)
  Sender: FDA-Public Use
  Company Number: PHEH2012US005118

PATIENT
  Sex: Female

DRUGS (3)
  1. SONATA [Concomitant]
  2. METHYLPHENIDATE [Suspect]
  3. PROZAC [Concomitant]

REACTIONS (6)
  - DEMENTIA ALZHEIMER'S TYPE [None]
  - CONFUSIONAL STATE [None]
  - ANXIETY [None]
  - FATIGUE [None]
  - INSOMNIA [None]
  - DRUG INEFFECTIVE [None]
